FAERS Safety Report 17833215 (Version 2)
Quarter: 2020Q4

REPORT INFORMATION
  Report Type: Spontaneous
  Country: US (occurrence: US)
  Receive Date: 20200528
  Receipt Date: 20201222
  Transmission Date: 20210113
  Serious: Yes (Death, Other)
  Sender: FDA-Public Use
  Company Number: US-009507513-2005USA008950

PATIENT
  Sex: Female
  Weight: 86.17 kg

DRUGS (7)
  1. NOVOLOG [Concomitant]
     Active Substance: INSULIN ASPART
     Indication: DIABETES MELLITUS
     Dosage: UNK
     Dates: start: 20161115, end: 20180112
  2. IBUPROFEN. [Concomitant]
     Active Substance: IBUPROFEN
     Indication: ANTIINFLAMMATORY THERAPY
     Dosage: UNK
     Dates: start: 20160808, end: 20171231
  3. JANUVIA [Suspect]
     Active Substance: SITAGLIPTIN PHOSPHATE
     Indication: TYPE 2 DIABETES MELLITUS
     Dosage: 100 MILLIGRAM, ONCE DAILY
     Route: 048
     Dates: start: 20150108, end: 20170930
  4. CATAPRES [Concomitant]
     Active Substance: CLONIDINE HYDROCHLORIDE
     Indication: BLOOD PRESSURE ABNORMAL
     Dosage: ONE TABLET BY MOUTH TWICE DAILY
     Dates: start: 20160226, end: 20180126
  5. AMLODIPINE BESYLATE. [Concomitant]
     Active Substance: AMLODIPINE BESYLATE
     Indication: BLOOD PRESSURE ABNORMAL
     Dosage: UNK
     Dates: start: 20150105, end: 20171229
  6. LEVEMIR [Concomitant]
     Active Substance: INSULIN DETEMIR
     Indication: DIABETES MELLITUS
     Dosage: UNK
     Dates: start: 20170310, end: 20171225
  7. COZAAR [Concomitant]
     Active Substance: LOSARTAN POTASSIUM
     Indication: BLOOD PRESSURE ABNORMAL
     Dosage: UNK
     Route: 048
     Dates: start: 20150105, end: 20180311

REACTIONS (16)
  - Nausea [Unknown]
  - Fungal infection [Unknown]
  - Steroid therapy [Unknown]
  - Blood cholesterol increased [Unknown]
  - Adenocarcinoma pancreas [Unknown]
  - Antibiotic therapy [Unknown]
  - Muscle relaxant therapy [Unknown]
  - Arthritis [Recovered/Resolved]
  - Antidepressant therapy [Unknown]
  - Respiration abnormal [Recovered/Resolved]
  - Constipation [Unknown]
  - Cough [Recovered/Resolved]
  - Influenza [Unknown]
  - Death [Fatal]
  - Pain [Recovered/Resolved]
  - Inflammation [Unknown]

NARRATIVE: CASE EVENT DATE: 20170421
